FAERS Safety Report 21790115 (Version 1)
Quarter: 2022Q4

REPORT INFORMATION
  Report Type: Spontaneous
  Country: CA (occurrence: CA)
  Receive Date: 20221228
  Receipt Date: 20221228
  Transmission Date: 20230113
  Serious: Yes (Disabling)
  Sender: FDA-Public Use
  Company Number: CA-MYLANLABS-2022M1146994

PATIENT
  Age: 21 Year
  Sex: Male
  Weight: 57.6 kg

DRUGS (1)
  1. ISOTRETINOIN [Suspect]
     Active Substance: ISOTRETINOIN
     Indication: Acne
     Dosage: 10 MILLIGRAM, BID (10.0 MILLIGRAM, 2 EVERY 1 DAYS)
     Route: 048

REACTIONS (4)
  - Corrective lens user [Unknown]
  - Drug-disease interaction [Unknown]
  - Myopia [Unknown]
  - Dry eye [Unknown]
